FAERS Safety Report 11693290 (Version 1)
Quarter: 2015Q4

REPORT INFORMATION
  Report Type: Spontaneous
  Country: None (occurrence: None)
  Receive Date: 20151102
  Receipt Date: 20151102
  Transmission Date: 20160304
  Serious: Yes (Hospitalization)
  Sender: FDA-Public Use
  Company Number: None

PATIENT
  Age: 18 Year
  Sex: Male
  Weight: 81.65 kg

DRUGS (4)
  1. TECTA [Concomitant]
     Active Substance: PANTOPRAZOLE MAGNESIUM
  2. VENTOLIN [Concomitant]
     Active Substance: ALBUTEROL SULFATE
  3. ADVAIR DISKUS [Suspect]
     Active Substance: FLUTICASONE PROPIONATE\SALMETEROL XINAFOATE
     Indication: ASTHMA
     Dosage: ONE DOSE, 33 DOSES.
     Route: 055
  4. ACETAMINOPHEN. [Concomitant]
     Active Substance: ACETAMINOPHEN

REACTIONS (2)
  - Therapy cessation [None]
  - Chest pain [None]

NARRATIVE: CASE EVENT DATE: 20151031
